FAERS Safety Report 8902530 (Version 1)
Quarter: 2012Q4

REPORT INFORMATION
  Report Type: 
  Country: ES (occurrence: ES)
  Receive Date: 20121112
  Receipt Date: 20121112
  Transmission Date: 20130627
  Serious: Yes (Hospitalization)
  Sender: FDA-Public Use
  Company Number: ES-SANOFI-AVENTIS-2012SA081480

PATIENT
  Age: 19 Year
  Sex: Male

DRUGS (8)
  1. ISONIAZID [Suspect]
     Indication: LYMPH NODE TUBERCULOSIS
     Route: 065
  2. ISONIAZID [Suspect]
     Indication: LYMPH NODE TUBERCULOSIS
     Dosage: challenge test
     Route: 065
  3. RIFAMPICIN [Suspect]
     Indication: LYMPH NODE TUBERCULOSIS
     Route: 065
  4. RIFAMPICIN [Suspect]
     Indication: LYMPH NODE TUBERCULOSIS
     Dosage: challenge test
     Route: 065
  5. PYRAZINAMIDE [Suspect]
     Indication: LYMPH NODE TUBERCULOSIS
     Route: 065
  6. PYRAZINAMIDE [Suspect]
     Indication: LYMPH NODE TUBERCULOSIS
     Dosage: challenge test
     Route: 065
  7. ETHAMBUTOL [Suspect]
     Indication: LYMPH NODE TUBERCULOSIS
     Route: 065
  8. ETHAMBUTOL [Suspect]
     Indication: LYMPH NODE TUBERCULOSIS
     Dosage: challenge test
     Route: 065

REACTIONS (9)
  - Drug reaction with eosinophilia and systemic symptoms [Recovering/Resolving]
  - Pyrexia [Recovering/Resolving]
  - Leukocytosis [Recovering/Resolving]
  - Eosinophilia [Recovering/Resolving]
  - Hepatic failure [Recovering/Resolving]
  - Urticaria [Recovering/Resolving]
  - Erythema [Recovering/Resolving]
  - Pruritus [Recovering/Resolving]
  - Rash [Recovering/Resolving]
